FAERS Safety Report 16509921 (Version 1)
Quarter: 2019Q3

REPORT INFORMATION
  Report Type: Spontaneous
  Country: SG (occurrence: SG)
  Receive Date: 20190701
  Receipt Date: 20190701
  Transmission Date: 20191004
  Serious: Yes (Other)
  Sender: FDA-Public Use
  Company Number: PHHY2019SG147803

PATIENT
  Sex: Female

DRUGS (1)
  1. DICLOFENAC [Suspect]
     Active Substance: DICLOFENAC
     Indication: PRODUCT USED FOR UNKNOWN INDICATION
     Dosage: UNK
     Route: 065

REACTIONS (8)
  - Flushing [Unknown]
  - Dyspnoea [Unknown]
  - Erythema nodosum [Unknown]
  - Face oedema [Unknown]
  - Dermatitis exfoliative generalised [Unknown]
  - Pyrexia [Unknown]
  - Fixed eruption [Unknown]
  - Erythema multiforme [Unknown]
